FAERS Safety Report 19214553 (Version 3)
Quarter: 2021Q3

REPORT INFORMATION
  Report Type: Spontaneous
  Country: US (occurrence: US)
  Receive Date: 20210505
  Receipt Date: 20210820
  Transmission Date: 20211014
  Serious: Yes (Disabling)
  Sender: FDA-Public Use
  Company Number: US-ORGANON-O2104USA001436

PATIENT
  Age: 24 Year
  Sex: Female
  Weight: 53.5 kg

DRUGS (2)
  1. NEXPLANON [Suspect]
     Active Substance: ETONOGESTREL
     Indication: CONTRACEPTION
     Dosage: 1 IMPLANT OF 68 MILLIGRAM, LEFT UPPER ARM
     Route: 059
     Dates: start: 20180402, end: 20210715
  2. NEXPLANON [Suspect]
     Active Substance: ETONOGESTREL
     Indication: CONTRACEPTION
     Dosage: 1 IMPLANT OF 68 MILLIGRAM
     Route: 059
     Dates: end: 20180402

REACTIONS (10)
  - Complication of device removal [Recovered/Resolved]
  - Nerve injury [Unknown]
  - Scar [Unknown]
  - Muscular weakness [Unknown]
  - Hypoaesthesia [Unknown]
  - Capsular contracture associated with implant [Recovered/Resolved]
  - Device placement issue [Recovered/Resolved]
  - Incorrect product administration duration [Unknown]
  - Movement disorder [Unknown]
  - Complication associated with device [Recovered/Resolved]

NARRATIVE: CASE EVENT DATE: 20180402
